FAERS Safety Report 5920219-8 (Version None)
Quarter: 2008Q4

REPORT INFORMATION
  Report Type: 
  Country: None (occurrence: None)
  Receive Date: 20081016
  Receipt Date: 20071221
  Transmission Date: 20090506
  Serious: No
  Sender: FDA-Public Use
  Company Number: A0700293A

PATIENT
  Age: 6 Year
  Sex: Male

DRUGS (4)
  1. CEFTIN [Suspect]
     Indication: OTITIS MEDIA ACUTE
     Dosage: 250MG TWICE PER DAY
     Route: 048
     Dates: start: 20071213
  2. ZYRTEC [Concomitant]
  3. INSULIN (SLIDING SCALE) [Concomitant]
  4. LANTUS [Concomitant]

REACTIONS (1)
  - BLOOD GLUCOSE INCREASED [None]
